FAERS Safety Report 4356054-4 (Version None)
Quarter: 2004Q2

REPORT INFORMATION
  Report Type: 
  Country: None (occurrence: None)
  Receive Date: 20040511
  Receipt Date: 20040429
  Transmission Date: 20050107
  Serious: Yes (Disabling, Other)
  Sender: FDA-Public Use
  Company Number: GB-BRISTOL-MYERS SQUIBB COMPANY-12573986

PATIENT
  Age: 84 Year
  Sex: Female

DRUGS (9)
  1. PRAVASTATIN SODIUM [Suspect]
     Indication: HYPERCHOLESTEROLAEMIA
     Route: 048
     Dates: start: 20040326, end: 20040326
  2. DILTIAZEM HCL [Concomitant]
  3. GLUCOSAMINE [Concomitant]
  4. VALSARTAN [Concomitant]
  5. ASPIRIN [Concomitant]
  6. FUROSEMIDE [Concomitant]
  7. FYBOGEL [Concomitant]
  8. RABEPRAZOLE SODIUM [Concomitant]
  9. CO-DYDRAMOL [Concomitant]

REACTIONS (1)
  - MYOSITIS [None]
